FAERS Safety Report 19159732 (Version 2)
Quarter: 2021Q2

REPORT INFORMATION
  Report Type: Spontaneous
  Country: US (occurrence: US)
  Receive Date: 20210420
  Receipt Date: 20210424
  Transmission Date: 20210717
  Serious: Yes (Life-Threatening, Other)
  Sender: FDA-Public Use
  Company Number: US-TEVA-2021-US-1901162

PATIENT
  Sex: Male

DRUGS (5)
  1. CLONAZEPAM TEVA [Suspect]
     Active Substance: CLONAZEPAM
     Dosage: CURRENTLY PRESCRIBED TO TAKE HALF OF A 1MG TABLET THREE TIMES A DAY
     Route: 065
  2. CLONAZEPAM TEVA [Suspect]
     Active Substance: CLONAZEPAM
     Dosage: 1.25 MILLIGRAM DAILY;
     Route: 065
  3. CLONAZEPAM TEVA [Suspect]
     Active Substance: CLONAZEPAM
     Dosage: 2 MILLIGRAM DAILY;
     Route: 065
  4. CLONAZEPAM TEVA [Suspect]
     Active Substance: CLONAZEPAM
     Indication: DEPRESSION
     Route: 065
     Dates: start: 2001
  5. CLONAZEPAM TEVA [Suspect]
     Active Substance: CLONAZEPAM
     Dosage: 4 MILLIGRAM DAILY;
     Route: 065

REACTIONS (9)
  - Eating disorder [Recovered/Resolved]
  - Thinking abnormal [Unknown]
  - Suicidal ideation [Recovered/Resolved]
  - Drug intolerance [Not Recovered/Not Resolved]
  - Depression [Recovered/Resolved]
  - Product prescribing error [Unknown]
  - Drug dependence [Not Recovered/Not Resolved]
  - Withdrawal syndrome [Unknown]
  - Drug ineffective for unapproved indication [Unknown]
